FAERS Safety Report 7252861-9 (Version None)
Quarter: 2011Q1

REPORT INFORMATION
  Report Type: 
  Country: None (occurrence: None)
  Receive Date: 20110129
  Receipt Date: 20100329
  Transmission Date: 20110831
  Serious: No
  Sender: FDA-Public Use
  Company Number: US-ABBOTT-10P-163-0635135-00

PATIENT
  Sex: Female

DRUGS (4)
  1. PHENTIRIMINE [Concomitant]
     Indication: WEIGHT DECREASED
  2. ESTRADIOL [Concomitant]
     Indication: PRODUCT USED FOR UNKNOWN INDICATION
  3. HUMIRA [Suspect]
     Indication: PSORIASIS
     Dosage: THEN ONE ON DAY 6 THEN EOW
     Dates: start: 20100301
  4. LEVAQUIN [Concomitant]
     Indication: PRODUCT USED FOR UNKNOWN INDICATION

REACTIONS (3)
  - OEDEMA PERIPHERAL [None]
  - CONTUSION [None]
  - HAEMORRHAGE SUBCUTANEOUS [None]
